FAERS Safety Report 9711352 (Version 1)
Quarter: 2013Q4

REPORT INFORMATION
  Report Type: Spontaneous
  Country: US (occurrence: US)
  Receive Date: 20131126
  Receipt Date: 20131126
  Transmission Date: 20140711
  Serious: No
  Sender: FDA-Public Use
  Company Number: US-BRISTOL-MYERS SQUIBB COMPANY-19203389

PATIENT
  Age: 46 Year
  Sex: Male
  Weight: 99.32 kg

DRUGS (5)
  1. BYETTA PEN DISPOSABLE [Suspect]
     Indication: TYPE 2 DIABETES MELLITUS
     Route: 058
     Dates: start: 201303
  2. METFORMIN HCL [Suspect]
  3. LANTUS [Suspect]
     Dosage: 1DF-45 UNITS
     Route: 058
  4. GLYBURIDE [Suspect]
  5. GLIMEPIRIDE [Suspect]

REACTIONS (5)
  - Blood glucose decreased [Not Recovered/Not Resolved]
  - Feeling abnormal [Not Recovered/Not Resolved]
  - Nausea [Not Recovered/Not Resolved]
  - Eructation [Not Recovered/Not Resolved]
  - Product quality issue [Unknown]
